FAERS Safety Report 14970026 (Version 2)
Quarter: 2018Q2

REPORT INFORMATION
  Report Type: Report from Study
  Country: US (occurrence: US)
  Receive Date: 20180604
  Receipt Date: 20180607
  Transmission Date: 20180711
  Serious: Yes (Death)
  Sender: FDA-Public Use
  Company Number: US-PFIZER INC-2018222881

PATIENT
  Age: 55 Year
  Sex: Male
  Weight: 67 kg

DRUGS (5)
  1. BUSULFAN. [Concomitant]
     Active Substance: BUSULFAN
     Dosage: UNK
     Dates: start: 20180404, end: 20180409
  2. CYTOXAN [Concomitant]
     Active Substance: CYCLOPHOSPHAMIDE
     Dosage: TOTAL 3960MG
     Dates: start: 20180410, end: 20180411
  3. MYLOTARG [Suspect]
     Active Substance: GEMTUZUMAB OZOGAMICIN
     Indication: ACUTE MYELOID LEUKAEMIA
     Dosage: 14 MG, QD X1
     Route: 042
     Dates: start: 20180329, end: 20180329
  4. ATG /00575401/ [Concomitant]
     Active Substance: LAPINE T-LYMPHOCYTE IMMUNE GLOBULIN
     Dosage: 2MG/KG TOTAL 137MG
     Dates: start: 20180406, end: 20180409
  5. DEFIBROTIDE [Concomitant]
     Active Substance: DEFIBROTIDE (BOVINE)
     Dosage: 400 MG, UNK
     Dates: start: 20180418, end: 20180508

REACTIONS (1)
  - Multiple organ dysfunction syndrome [Fatal]

NARRATIVE: CASE EVENT DATE: 20180510
